FAERS Safety Report 5503177-X (Version None)
Quarter: 2007Q4

REPORT INFORMATION
  Report Type: 
  Country: None (occurrence: None)
  Receive Date: 20071029
  Receipt Date: 20071029
  Transmission Date: 20080405
  Serious: Yes (Hospitalization)
  Sender: FDA-Public Use
  Company Number: None

PATIENT
  Sex: Male

DRUGS (2)
  1. SEROQUEL [Suspect]
     Indication: BIPOLAR DISORDER
     Dosage: ORAL
     Route: 048
  2. LITHIUM, UNKNOWN STRENGTH, UNKNOWN MANUFACTURER [Suspect]
     Indication: BIPOLAR DISORDER
     Dosage: ORAL
     Route: 048

REACTIONS (5)
  - AGITATION NEONATAL [None]
  - DRUG EXPOSURE DURING PREGNANCY [None]
  - FEEDING DISORDER NEONATAL [None]
  - FEVER NEONATAL [None]
  - TREMOR NEONATAL [None]
